FAERS Safety Report 6603631-3 (Version None)
Quarter: 2010Q1

REPORT INFORMATION
  Report Type: 
  Country: None (occurrence: None)
  Receive Date: 20100226
  Receipt Date: 20100204
  Transmission Date: 20100710
  Serious: No
  Sender: FDA-Public Use
  Company Number: A0835204A

PATIENT
  Age: 55 Year
  Sex: Female

DRUGS (1)
  1. VALTREX [Suspect]
     Indication: ILL-DEFINED DISORDER
     Route: 048
     Dates: start: 20011101

REACTIONS (2)
  - DRUG EFFECT DECREASED [None]
  - ILL-DEFINED DISORDER [None]
